FAERS Safety Report 25778880 (Version 1)
Quarter: 2025Q3

REPORT INFORMATION
  Report Type: Spontaneous
  Country: CH (occurrence: CH)
  Receive Date: 20250909
  Receipt Date: 20250909
  Transmission Date: 20251021
  Serious: Yes (Hospitalization)
  Sender: TEVA
  Company Number: None

PATIENT
  Age: 54 Year
  Sex: Male

DRUGS (17)
  1. PACLITAXEL [Suspect]
     Active Substance: PACLITAXEL
     Indication: Product used for unknown indication
     Dosage: ON 29 MAY, 19 JUNE AND 9 JULY 2025
     Route: 042
     Dates: start: 20250529, end: 20250709
  2. SODIUM PICOSULFATE [Concomitant]
     Active Substance: SODIUM PICOSULFATE
     Indication: Product used for unknown indication
     Route: 065
  3. KEYTRUDA [Suspect]
     Active Substance: PEMBROLIZUMAB
     Indication: Squamous cell carcinoma
     Route: 065
     Dates: start: 20250709, end: 20250709
  4. MORPHINE HYDROCHLORIDE [Concomitant]
     Active Substance: MORPHINE HYDROCHLORIDE
     Indication: Product used for unknown indication
     Route: 048
  5. AMITRIPTYLINE [Suspect]
     Active Substance: AMITRIPTYLINE
     Indication: Product used for unknown indication
     Dosage: 0-0-1-0
     Route: 048
     Dates: start: 20250704, end: 20250729
  6. Temesta [Concomitant]
     Indication: Product used for unknown indication
     Route: 065
  7. Phoscap [Concomitant]
     Indication: Product used for unknown indication
     Route: 048
     Dates: end: 20250729
  8. Phoscap [Concomitant]
     Indication: Product used for unknown indication
     Dosage: 1-1-1-0,
     Route: 048
     Dates: start: 20250809
  9. FENTANYL [Concomitant]
     Active Substance: FENTANYL
     Indication: Product used for unknown indication
     Dosage: 62 ?G/H EVERY 72 HOURS (2 PIECES, EACH 25 ?G/H, 1 TABLET WITH 12 ?G/H)
     Route: 062
  10. VANCOCIN [Suspect]
     Active Substance: VANCOMYCIN HYDROCHLORIDE
     Indication: Product used for unknown indication
     Dosage: 1-1-1-1
     Route: 048
     Dates: start: 20250704, end: 20250714
  11. MOVICOL [Concomitant]
     Active Substance: POLYETHYLENE GLYCOL 3350\POTASSIUM CHLORIDE\SODIUM BICARBONATE\SODIUM CHLORIDE
     Indication: Product used for unknown indication
     Route: 065
  12. ESOMEPRAZOLE [Concomitant]
     Active Substance: ESOMEPRAZOLE
     Indication: Product used for unknown indication
     Dosage: 1-0-0-0
     Route: 048
     Dates: end: 20250729
  13. METAMIZOLE [Concomitant]
     Active Substance: METAMIZOLE
     Indication: Product used for unknown indication
     Dosage: 0.5 G/ML 40-40-40-40
     Route: 048
     Dates: end: 20250729
  14. CIPROFLOXACIN [Suspect]
     Active Substance: CIPROFLOXACIN
     Indication: Product used for unknown indication
     Dosage: 500 MG 1-0-1-0
     Route: 065
     Dates: start: 20250715, end: 20250722
  15. CARBOPLATIN [Suspect]
     Active Substance: CARBOPLATIN
     Indication: Product used for unknown indication
     Route: 042
     Dates: start: 20250529, end: 20250529
  16. CARBOPLATIN [Suspect]
     Active Substance: CARBOPLATIN
     Indication: Product used for unknown indication
     Dosage: ON 19 JUNE AND 9 JULY 2025
     Route: 042
     Dates: start: 20250619, end: 20250709
  17. DAFALGAN [Concomitant]
     Active Substance: ACETAMINOPHEN
     Indication: Product used for unknown indication
     Dosage: 1-1-1-1
     Route: 048
     Dates: end: 20250729

REACTIONS (1)
  - Drug eruption [Recovering/Resolving]

NARRATIVE: CASE EVENT DATE: 20250723
